FAERS Safety Report 17677298 (Version 2)
Quarter: 2020Q2

REPORT INFORMATION
  Report Type: Report from Study
  Country: None (occurrence: CN)
  Receive Date: 20200416
  Receipt Date: 20200424
  Transmission Date: 20200714
  Serious: Yes (Hospitalization)
  Sender: FDA-Public Use
  Company Number: CN-ABBVIE-19P-035-2871296-00

PATIENT
  Age: 73 Year
  Sex: Male
  Weight: 85 kg

DRUGS (34)
  1. POVIDONE-IODINE. [Concomitant]
     Active Substance: POVIDONE-IODINE
     Indication: INFECTION PROPHYLAXIS
     Dosage: 1 APPLICATION
     Route: 061
     Dates: start: 20180710
  2. RECOMBINANT HUMAN GRANULOCYTE COLONY STIMULATING FACTOR [Concomitant]
     Active Substance: GRANULOCYTE COLONY-STIMULATING FACTOR NOS
     Indication: LEUKOPENIA
     Dates: start: 201907, end: 201908
  3. IODINE GLYCEROL [Concomitant]
     Indication: INFECTION PROPHYLAXIS
     Dosage: 1 APPLICATION
     Route: 061
     Dates: start: 20180710
  4. NORMAL SALINE SOLUTION [Concomitant]
     Route: 042
     Dates: start: 20180803, end: 20180803
  5. INSULIN GLARGINE INJECTION [Concomitant]
     Indication: DIABETES MELLITUS
     Route: 058
     Dates: start: 20190626, end: 20190703
  6. MACROGOL 4000 [Concomitant]
     Active Substance: POLYETHYLENE GLYCOL 4000
     Indication: CONSTIPATION PROPHYLAXIS
     Route: 048
     Dates: start: 20190626, end: 20190713
  7. INSULIN INJECTION [Concomitant]
     Active Substance: INSULIN NOS
     Indication: DIABETES MELLITUS
     Dates: start: 201907, end: 201908
  8. INSULIN GLARGINE INJECTION [Concomitant]
     Route: 058
     Dates: start: 20190920, end: 20191105
  9. VENETOCLAX. [Suspect]
     Active Substance: VENETOCLAX
     Route: 048
     Dates: start: 20190921
  10. AZACITIDINE. [Suspect]
     Active Substance: AZACITIDINE
     Dosage: DAYS 1-7 OF 28 DAY CYCLE
     Route: 058
     Dates: start: 20190921, end: 20190927
  11. AZACITIDINE. [Suspect]
     Active Substance: AZACITIDINE
     Dosage: DAYS 1-7 OF 28 DAY CYCLE
     Route: 058
     Dates: start: 20191225, end: 20191231
  12. NORMAL SALINE SOLUTION [Concomitant]
     Indication: PROPHYLAXIS
     Route: 042
     Dates: start: 20180729, end: 20180802
  13. COMPOUND DYCLONINE OINTMENT [Concomitant]
     Indication: PROPHYLAXIS
  14. COMPOUND HUANGQINLONG TEA PLUG [Concomitant]
     Indication: PHYTOTHERAPY
  15. TROPISETRON HYDROCHLORIDE [Concomitant]
     Active Substance: TROPISETRON HYDROCHLORIDE
     Indication: GASTROINTESTINAL DISORDER PROPHYLAXIS
     Route: 041
     Dates: start: 20190921, end: 20190927
  16. MACROGOL 4000 [Concomitant]
     Active Substance: POLYETHYLENE GLYCOL 4000
     Route: 048
     Dates: start: 20190921, end: 20190921
  17. VENETOCLAX. [Suspect]
     Active Substance: VENETOCLAX
     Route: 048
     Dates: start: 20180731, end: 20180731
  18. ETAMSYLATE INJECTION [Concomitant]
     Indication: HAEMORRHAGE PROPHYLAXIS
     Dates: start: 201907, end: 201908
  19. COMPOUND DYCLONINE OINTMENT [Concomitant]
     Indication: INFECTION PROPHYLAXIS
     Route: 061
     Dates: start: 20180710
  20. RECOMBINANT HUMANTHROMBOPOIETIN INJECTION [Concomitant]
     Indication: THROMBOCYTOPENIA
     Route: 041
     Dates: start: 201908, end: 201908
  21. VENETOCLAX. [Suspect]
     Active Substance: VENETOCLAX
     Route: 048
     Dates: start: 20180801, end: 20190717
  22. VENETOCLAX. [Suspect]
     Active Substance: VENETOCLAX
     Route: 048
     Dates: start: 20191225, end: 20200114
  23. PANTOPRAZOLE SODIUM. [Concomitant]
     Active Substance: PANTOPRAZOLE SODIUM
     Indication: GASTROINTESTINAL DISORDER PROPHYLAXIS
     Route: 041
     Dates: start: 20190627, end: 20190703
  24. GAMMA GLOBULIN NEEDLE [Concomitant]
     Indication: IMMUNE SYSTEM DISORDER
     Dates: start: 201907, end: 201907
  25. COMPOUND SODIUM BICARBONATE MOUTHWASH [Concomitant]
     Indication: INFECTION PROPHYLAXIS
     Dosage: 1 CUP
     Route: 048
     Dates: start: 20180710
  26. NORMAL SALINE SOLUTION [Concomitant]
     Route: 042
     Dates: start: 20180904, end: 20180914
  27. RECOMBINANT HUMAN INTERLEUKIN-11 FOR INJECTION [Concomitant]
     Indication: THROMBOCYTOPENIA
     Dates: start: 201907, end: 201907
  28. ACARBOSE TABLETS [Concomitant]
     Active Substance: ACARBOSE
     Indication: DIABETES MELLITUS
     Dates: start: 2016
  29. PANTOPRAZOLE SODIUM. [Concomitant]
     Active Substance: PANTOPRAZOLE SODIUM
     Indication: GASTROINTESTINAL DISORDER PROPHYLAXIS
     Route: 041
     Dates: start: 20190921, end: 20190927
  30. COMPOUND HUANGQINLONG TEA PLUG [Concomitant]
     Indication: INFECTION PROPHYLAXIS
     Route: 054
     Dates: start: 20180710
  31. TROPISETRON HYDROCHLORIDE [Concomitant]
     Active Substance: TROPISETRON HYDROCHLORIDE
     Indication: GASTROINTESTINAL DISORDER PROPHYLAXIS
     Route: 041
     Dates: start: 20190627, end: 20190703
  32. AMBROXOL HYDROCHLORIDE INJECTION [Concomitant]
     Indication: PRODUCTIVE COUGH
     Dates: start: 201908, end: 201908
  33. VENETOCLAX. [Suspect]
     Active Substance: VENETOCLAX
     Indication: ACUTE MYELOID LEUKAEMIA
     Route: 048
     Dates: start: 20180730, end: 20180730
  34. AZACITIDINE. [Suspect]
     Active Substance: AZACITIDINE
     Indication: ACUTE MYELOID LEUKAEMIA
     Dosage: DAYS 1-7 OF 28 DAY CYCLE
     Route: 058
     Dates: start: 20180730, end: 20190703

REACTIONS (1)
  - Pneumonia [Not Recovered/Not Resolved]

NARRATIVE: CASE EVENT DATE: 20190715
